FAERS Safety Report 8449902 (Version 2)
Quarter: 2012Q4

REPORT INFORMATION
  Report Type: 
  Country: BR (occurrence: BR)
  Receive Date: 20120309
  Receipt Date: 20121203
  Transmission Date: 20130627
  Serious: Yes (Other)
  Sender: FDA-Public Use
  Company Number: BR-PFIZER INC-2012059585

PATIENT
  Age: 53 Year
  Sex: Female

DRUGS (5)
  1. CHAMPIX [Suspect]
     Indication: SMOKING CESSATION THERAPY
     Dosage: UNK
     Route: 048
     Dates: start: 20120305, end: 2012
  2. CHAMPIX [Suspect]
     Dosage: half tablet of 1 mg (0.5 mg), unspecified frequency
     Dates: start: 201211
  3. RIVOTRIL [Concomitant]
     Indication: DEPRESSION
     Dosage: 2 (unspecified unit), unspecified frequency
  4. CITALOPRAM [Concomitant]
     Indication: NEUROTRANSMITTER LEVEL ALTERED
     Dosage: 20 mg, 1x/day
     Dates: start: 2010
  5. TANDRILAX [Concomitant]
     Indication: HERNIATED DISC
     Dosage: unspecified dose, sporadically (as needed)

REACTIONS (2)
  - Apathy [Unknown]
  - Nervousness [Unknown]
